FAERS Safety Report 24753218 (Version 1)
Quarter: 2024Q4

REPORT INFORMATION
  Report Type: Spontaneous
  Country: US (occurrence: US)
  Receive Date: 20241219
  Receipt Date: 20241219
  Transmission Date: 20250115
  Serious: No
  Sender: PACIRA
  Company Number: US-ORG100016242-2024000062

PATIENT
  Sex: Female

DRUGS (2)
  1. EXPAREL [Suspect]
     Active Substance: BUPIVACAINE
     Indication: Product used for unknown indication
     Dosage: MIXED WITH LIDOCAINE AROUND MUSCLE IN CHEST
     Route: 058
  2. LIDOCAINE [Suspect]
     Active Substance: LIDOCAINE
     Indication: Product used for unknown indication
     Dosage: MIXED WITH EXPAREL AROUND MUSCLE IN CHEST
     Route: 058

REACTIONS (1)
  - Labelled drug-drug interaction medication error [Unknown]
